FAERS Safety Report 8109546-6 (Version None)
Quarter: 2012Q1

REPORT INFORMATION
  Report Type: 
  Country: None (occurrence: None)
  Receive Date: 20120202
  Receipt Date: 20120116
  Transmission Date: 20120608
  Serious: No
  Sender: FDA-Public Use
  Company Number: US-AMGEN-USASP2011067967

PATIENT
  Age: 65 Year
  Sex: Female

DRUGS (4)
  1. PREDNISONE TAB [Concomitant]
     Dosage: 11 MG, UNK
  2. MELOXICAM [Concomitant]
  3. PRAVASTATIN [Concomitant]
  4. ENBREL [Suspect]
     Indication: PSORIATIC ARTHROPATHY
     Dosage: 50 MG, QWK
     Route: 058
     Dates: start: 20111115

REACTIONS (2)
  - INJECTION SITE ERYTHEMA [None]
  - INJECTION SITE RASH [None]
